FAERS Safety Report 4905642-2 (Version None)
Quarter: 2006Q1

REPORT INFORMATION
  Report Type: 
  Country: None (occurrence: None)
  Receive Date: 20060203
  Receipt Date: 20060130
  Transmission Date: 20060701
  Serious: Yes (Other)
  Sender: FDA-Public Use
  Company Number: S05-USA-05240-01

PATIENT
  Age: 50 Year
  Sex: Male

DRUGS (5)
  1. LEXAPRO [Suspect]
     Indication: DEPRESSION
     Dosage: 5 MG QD PO
     Route: 048
     Dates: start: 20051129, end: 20051208
  2. LEXAPRO [Suspect]
     Indication: DEPRESSION
     Dosage: 10 MG QD PO
     Route: 048
     Dates: start: 20051209, end: 20060105
  3. ANTIBIOTICS (NOS) [Suspect]
     Indication: URINARY TRACT INFECTION
     Dates: start: 20051201
  4. EVOXAC [Concomitant]
  5. KLONOPIN [Concomitant]

REACTIONS (5)
  - CONDITION AGGRAVATED [None]
  - ORAL CANDIDIASIS [None]
  - RED BLOOD CELLS URINE [None]
  - SJOGREN'S SYNDROME [None]
  - URINARY TRACT INFECTION [None]
